FAERS Safety Report 21311965 (Version 6)
Quarter: 2022Q4

REPORT INFORMATION
  Report Type: Report from Study
  Country: KR (occurrence: None)
  Receive Date: 20220909
  Receipt Date: 20221011
  Transmission Date: 20230113
  Serious: Yes (Hospitalization)
  Sender: FDA-Public Use
  Company Number: KR-Eisai Medical Research-EC-2022-122991

PATIENT
  Age: 75 Year
  Sex: Female
  Weight: 58.8 kg

DRUGS (17)
  1. LENVATINIB [Suspect]
     Active Substance: LENVATINIB
     Indication: Clear cell renal cell carcinoma
     Route: 048
     Dates: start: 20220810, end: 20220824
  2. LENVATINIB [Suspect]
     Active Substance: LENVATINIB
     Route: 048
     Dates: start: 20220919, end: 20220927
  3. QUAVONLIMAB [Suspect]
     Active Substance: QUAVONLIMAB
     Indication: Clear cell renal cell carcinoma
     Dosage: (MK-1308) 25MG + (MK-3475) 400 MG
     Route: 041
     Dates: start: 20220808, end: 20220808
  4. PEMBROLIZUMAB [Suspect]
     Active Substance: PEMBROLIZUMAB
     Dosage: (MK-1308) 25MG + (MK-3475) 400 MG
     Route: 041
     Dates: start: 20220919, end: 20220919
  5. DICHLOZID [Concomitant]
     Dates: start: 200707
  6. CRESTOR [Concomitant]
     Active Substance: ROSUVASTATIN CALCIUM
     Dates: start: 201211
  7. CHOLIACEN [Concomitant]
     Dates: start: 201509
  8. ZEMIGLO [Concomitant]
     Dates: start: 201902
  9. FOTAGEL [Concomitant]
     Dates: start: 20220808
  10. SODIUM BICARBONATE [Concomitant]
     Active Substance: SODIUM BICARBONATE
     Dates: start: 20220808
  11. NORVASC [Concomitant]
     Active Substance: AMLODIPINE BESYLATE
     Dates: start: 20220808
  12. NORZYME [Concomitant]
     Dates: start: 20220808
  13. OLMEC [Concomitant]
     Dates: start: 20220808
  14. MAGMIL S [Concomitant]
  15. TANTUM [BENZYDAMINE HYDROCHLORIDE] [Concomitant]
     Dates: start: 20220808
  16. URSODIOL [Concomitant]
     Active Substance: URSODIOL
     Dates: start: 20220824, end: 20220831
  17. LOPERAMIDE [Concomitant]
     Active Substance: LOPERAMIDE
     Dates: start: 20220808

REACTIONS (1)
  - Decreased appetite [Recovering/Resolving]

NARRATIVE: CASE EVENT DATE: 20220825
